FAERS Safety Report 7706358-X (Version None)
Quarter: 2011Q3

REPORT INFORMATION
  Report Type: 
  Country: None (occurrence: None)
  Receive Date: 20110824
  Receipt Date: 20110811
  Transmission Date: 20111222
  Serious: Yes (Other)
  Sender: FDA-Public Use
  Company Number: US-JNJFOC-20110806185

PATIENT
  Sex: Male

DRUGS (9)
  1. REMICADE [Suspect]
     Indication: PRODUCT USED FOR UNKNOWN INDICATION
     Route: 042
  2. REMICADE [Suspect]
     Route: 042
     Dates: start: 20110601
  3. ALPHAGAN P [Concomitant]
     Dosage: 0.15%
     Route: 047
  4. FOLIC ACID [Concomitant]
  5. METHOTREXATE [Concomitant]
  6. LOTEMAX [Concomitant]
     Dosage: 1 GTT EVERY OTHER DAY
     Route: 047
  7. COSOPT [Concomitant]
     Dosage: BOTH EYES
     Route: 047
  8. MULTI-VITAMINS [Concomitant]
  9. NEVANAC [Concomitant]
     Dosage: 1% 1 EVERY OTHER DAY

REACTIONS (2)
  - ABDOMINAL PAIN [None]
  - VISUAL IMPAIRMENT [None]
